FAERS Safety Report 7833523-3 (Version None)
Quarter: 2011Q4

REPORT INFORMATION
  Report Type: 
  Country: None (occurrence: None)
  Receive Date: 20111024
  Receipt Date: 20111011
  Transmission Date: 20120403
  Serious: Yes (Other)
  Sender: FDA-Public Use
  Company Number: US-BAYER-2011-009757

PATIENT
  Age: 40 Year
  Sex: Female

DRUGS (3)
  1. BENADRYL [Concomitant]
     Route: 048
  2. VITAMIN TAB [Concomitant]
     Route: 048
  3. YASMIN [Suspect]
     Indication: CONTRACEPTION
     Dosage: UNK
     Dates: start: 20020601, end: 20080901

REACTIONS (4)
  - PAIN [None]
  - DEEP VEIN THROMBOSIS [None]
  - MUSCLE SPASMS [None]
  - OEDEMA PERIPHERAL [None]
